FAERS Safety Report 20642086 (Version 1)
Quarter: 2022Q1

REPORT INFORMATION
  Report Type: Spontaneous
  Country: US (occurrence: US)
  Receive Date: 20220328
  Receipt Date: 20220328
  Transmission Date: 20220423
  Serious: No
  Sender: FDA-Public Use
  Company Number: ALC2021US004938

PATIENT
  Sex: Male

DRUGS (1)
  1. OLOPATADINE [Suspect]
     Active Substance: OLOPATADINE
     Indication: Product used for unknown indication
     Dosage: 2.5 ML, QD
     Route: 065

REACTIONS (2)
  - Product physical consistency issue [Not Recovered/Not Resolved]
  - Drug ineffective [Not Recovered/Not Resolved]
